FAERS Safety Report 11194364 (Version 1)
Quarter: 2015Q2

REPORT INFORMATION
  Report Type: Spontaneous
  Country: DE (occurrence: GB)
  Receive Date: 20150616
  Receipt Date: 20150616
  Transmission Date: 20150821
  Serious: Yes (Other)
  Sender: FDA-Public Use
  Company Number: DE-ELI_LILLY_AND_COMPANY-GB201506001627

PATIENT

DRUGS (2)
  1. OLANZAPINE. [Suspect]
     Active Substance: OLANZAPINE
     Indication: WEIGHT INCREASED
     Dosage: 20 MG, QD
     Route: 048
     Dates: start: 2014
  2. OLANZAPINE. [Suspect]
     Active Substance: OLANZAPINE
     Indication: SCHIZOPHRENIA

REACTIONS (5)
  - Weight increased [Unknown]
  - Schizophrenia [Unknown]
  - Musculoskeletal stiffness [Unknown]
  - Wrong technique in drug usage process [Unknown]
  - Off label use [Unknown]
